FAERS Safety Report 25246835 (Version 5)
Quarter: 2025Q3

REPORT INFORMATION
  Report Type: Spontaneous
  Country: CO (occurrence: CO)
  Receive Date: 20250428
  Receipt Date: 20250708
  Transmission Date: 20251021
  Serious: No
  Sender: PFIZER
  Company Number: CO-PFIZER INC-PV202500049260

PATIENT
  Age: 14 Year
  Sex: Male

DRUGS (2)
  1. GENOTROPIN [Suspect]
     Active Substance: SOMATROPIN
     Indication: Precocious puberty
     Dosage: 3.0 MG, DAILY
  2. NATRASOL [Concomitant]
     Indication: Precocious puberty

REACTIONS (5)
  - Incorrect dose administered by device [Unknown]
  - Device information output issue [Unknown]
  - Device delivery system issue [Unknown]
  - Device user interface issue [Unknown]
  - Off label use [Unknown]
